FAERS Safety Report 25162404 (Version 1)
Quarter: 2025Q2

REPORT INFORMATION
  Report Type: Spontaneous
  Country: US (occurrence: US)
  Receive Date: 20250404
  Receipt Date: 20250404
  Transmission Date: 20250716
  Serious: Yes (Hospitalization)
  Sender: AMGEN
  Company Number: US-AMGEN-USASP2025061023

PATIENT
  Age: 24 Year
  Sex: Female

DRUGS (4)
  1. PREDNISONE [Suspect]
     Active Substance: PREDNISONE
     Indication: Asthma
     Route: 065
  2. ALBUTEROL [Concomitant]
     Active Substance: ALBUTEROL
  3. ALBUTEROL [Concomitant]
     Active Substance: ALBUTEROL
  4. FLUTICASONE FUROATE\VILANTEROL TRIFENATATE [Concomitant]
     Active Substance: FLUTICASONE FUROATE\VILANTEROL TRIFENATATE

REACTIONS (1)
  - Asthma [Unknown]
